FAERS Safety Report 7426833-5 (Version None)
Quarter: 2011Q2

REPORT INFORMATION
  Report Type: 
  Country: None (occurrence: None)
  Receive Date: 20110420
  Receipt Date: 20110413
  Transmission Date: 20111010
  Serious: Yes (Hospitalization)
  Sender: FDA-Public Use
  Company Number: JP-B.I. PHARMACEUTICALS,INC./RIDGEFIELD-2011-BP-10656NB

PATIENT
  Age: 80 Year
  Sex: Male

DRUGS (1)
  1. PRAZAXA [Suspect]
     Dosage: 220MG
     Route: 048

REACTIONS (1)
  - MELAENA [None]
